FAERS Safety Report 10986938 (Version 1)
Quarter: 2015Q1

REPORT INFORMATION
  Report Type: Spontaneous
  Country: US (occurrence: None)
  Receive Date: 20150302
  Receipt Date: 20150302
  Transmission Date: 20150721
  Serious: Yes (Life-Threatening)
  Sender: FDA-Public Use
  Company Number: 2014001106

PATIENT
  Age: 71 Year
  Sex: Female
  Weight: 76 kg

DRUGS (24)
  1. PANTOPRAZOLE [Concomitant]
     Active Substance: PANTOPRAZOLE SODIUM
  2. AMINOCAPROIC ACID. [Concomitant]
     Active Substance: AMINOCAPROIC ACID
  3. HEMORRHOIDAL /00116302/ (PHENYLEPHRINE HYDROCHLORIDE) [Concomitant]
  4. BACITRACIN W/NEOMYCIN/POLYMYXIN B/PRAMOCAINE [Concomitant]
  5. METHADONE [Concomitant]
     Active Substance: METHADONE HYDROCHLORIDE
  6. VITAMIN A + D (ERGOCALCIFEROL, RETINOL) [Concomitant]
  7. SERTRALINE [Concomitant]
     Active Substance: SERTRALINE HYDROCHLORIDE
  8. CATHFLO (ALTEPLASE) [Concomitant]
  9. MICAFUNGIN [Concomitant]
     Active Substance: MICAFUNGIN
  10. VANCOMYCIN [Concomitant]
     Active Substance: VANCOMYCIN
  11. SODIUM CHLORIDE. [Concomitant]
     Active Substance: SODIUM CHLORIDE
  12. KEFLEX [Suspect]
     Active Substance: CEPHALEXIN
     Indication: INFECTION
     Route: 048
     Dates: start: 20141013, end: 20141014
  13. PIPERACILLIN/TAZOBACTAM [Concomitant]
     Active Substance: PIPERACILLIN SODIUM\TAZOBACTAM SODIUM
  14. CHLORHEXIDINE [Concomitant]
     Active Substance: CHLORHEXIDINE
  15. IPRATROPIUM [Concomitant]
     Active Substance: IPRATROPIUM
  16. ASP2215 (ASP2215) TABLET [Suspect]
     Active Substance: GILTERITINIB
     Indication: ACUTE MYELOID LEUKAEMIA
     Route: 048
     Dates: start: 20140909, end: 20141013
  17. GABAPENTIN. [Concomitant]
     Active Substance: GABAPENTIN
  18. OXYCODONE [Concomitant]
     Active Substance: OXYCODONE
  19. ZOLPIDEM TARTRATE. [Concomitant]
     Active Substance: ZOLPIDEM TARTRATE
  20. ACYCLOVIR /00587301/ (ACICLOVIR) [Concomitant]
     Active Substance: ACYCLOVIR
  21. HYDROMORPHONE [Concomitant]
     Active Substance: HYDROMORPHONE
  22. DAPTOMYCIN. [Concomitant]
     Active Substance: DAPTOMYCIN
  23. PROCHLORPERAZINE. [Concomitant]
     Active Substance: PROCHLORPERAZINE
  24. LORAZEPAM. [Concomitant]
     Active Substance: LORAZEPAM

REACTIONS (1)
  - Anaphylactic reaction [None]

NARRATIVE: CASE EVENT DATE: 20141013
